FAERS Safety Report 8882688 (Version 2)
Quarter: 2012Q4

REPORT INFORMATION
  Report Type: 
  Country: UA (occurrence: UA)
  Receive Date: 20121105
  Receipt Date: 20121106
  Transmission Date: 20130627
  Serious: Yes (Other)
  Sender: FDA-Public Use
  Company Number: UA-JNJFOC-20121101203

PATIENT

DRUGS (6)
  1. DOXORUBICIN [Suspect]
     Indication: NON-HODGKIN^S LYMPHOMA
     Route: 042
  2. DOXORUBICIN [Suspect]
     Indication: NON-HODGKIN^S LYMPHOMA
     Route: 065
  3. CYCLOPHOSPHAMIDE [Suspect]
     Indication: NON-HODGKIN^S LYMPHOMA
     Route: 065
  4. VINCRISTINE [Suspect]
     Indication: NON-HODGKIN^S LYMPHOMA
     Route: 065
  5. PREDNISONE [Suspect]
     Indication: NON-HODGKIN^S LYMPHOMA
     Route: 065
  6. AN UNKNOWN MEDICATION [Concomitant]
     Indication: PALLIATIVE CARE
     Route: 065

REACTIONS (24)
  - Non-Hodgkin^s lymphoma [Unknown]
  - Haematotoxicity [Unknown]
  - Cardiomyopathy [Unknown]
  - Anaemia [Unknown]
  - Leukopenia [Unknown]
  - Neutropenia [Unknown]
  - Thrombocytopenia [Unknown]
  - Gastrointestinal disorder [Unknown]
  - Febrile neutropenia [Unknown]
  - Cardiomyopathy [Unknown]
  - Hypertension [Unknown]
  - Peripheral sensory neuropathy [Unknown]
  - Neuropathy peripheral [Unknown]
  - Cardiac failure [Unknown]
  - Polyneuropathy [Unknown]
  - Cardiotoxicity [Unknown]
  - Phlebitis [Unknown]
  - Neurosis [Unknown]
  - Heart injury [Unknown]
  - Nausea [Unknown]
  - Mucosal inflammation [Unknown]
  - Transaminases increased [Unknown]
  - Mood swings [Unknown]
  - Vomiting [Unknown]
